FAERS Safety Report 18416179 (Version 1)
Quarter: 2020Q4

REPORT INFORMATION
  Report Type: Spontaneous
  Country: CA (occurrence: CA)
  Receive Date: 20201022
  Receipt Date: 20201022
  Transmission Date: 20210114
  Serious: Yes (Other)
  Sender: FDA-Public Use
  Company Number: CA-PFIZER INC-2020406989

PATIENT
  Sex: Female

DRUGS (1)
  1. DOXORUBICIN HCL [Suspect]
     Active Substance: DOXORUBICIN HYDROCHLORIDE
     Dosage: UNK

REACTIONS (5)
  - Epithelioid sarcoma [Unknown]
  - Second primary malignancy [Unknown]
  - Neoplasm progression [Unknown]
  - Leiomyosarcoma [Unknown]
  - Sarcoma uterus [Unknown]
